FAERS Safety Report 4509215-5 (Version None)
Quarter: 2004Q4

REPORT INFORMATION
  Report Type: 
  Country: None (occurrence: None)
  Receive Date: 20041025
  Receipt Date: 20031118
  Transmission Date: 20050328
  Serious: Yes (Hospitalization, Other)
  Sender: FDA-Public Use
  Company Number: NSADSS2001034815

PATIENT
  Age: 62 Year
  Sex: Female

DRUGS (11)
  1. REMICADE [Concomitant]
     Indication: RHEUMATOID ARTHRITIS
     Dosage: , 1 IN 1 AS NECESSARY, INTRAVENOUS DRIP
     Route: 041
     Dates: start: 20000801, end: 20001201
  2. SYNTHROID [Concomitant]
  3. FOSAMAX [Concomitant]
  4. PROZAC [Concomitant]
  5. CALCIUM WITH VITAMIN D (CALCIUM VITAMIN D) [Concomitant]
  6. EVISTA [Concomitant]
  7. DITROPAN [Concomitant]
  8. METHOTREXATE [Concomitant]
  9. FOLIC ACID [Concomitant]
  10. ZANTAC [Concomitant]
  11. REMICADE (INFLIXIMAB, RECOMBINANT) LYOPHILIZED POWDER [Suspect]

REACTIONS (12)
  - CHOLECYSTITIS [None]
  - CHOLELITHIASIS [None]
  - CYSTITIS [None]
  - DEPRESSION [None]
  - DIARRHOEA [None]
  - FUNGAL INFECTION [None]
  - HAEMATOCHEZIA [None]
  - LIVER FUNCTION TEST ABNORMAL [None]
  - NEPHROLITHIASIS [None]
  - RENAL CYST [None]
  - RIB FRACTURE [None]
  - TUBERCULOSIS [None]
